FAERS Safety Report 15104294 (Version 4)
Quarter: 2018Q4

REPORT INFORMATION
  Report Type: Report from Study
  Country: US (occurrence: US)
  Receive Date: 20180703
  Receipt Date: 20181227
  Transmission Date: 20190204
  Serious: Yes (Hospitalization)
  Sender: FDA-Public Use
  Company Number: US-ACTELION-A-NJ2018-174704

PATIENT
  Age: 68 Year
  Sex: Female
  Weight: 44.44 kg

DRUGS (1)
  1. TRACLEER [Suspect]
     Active Substance: BOSENTAN
     Indication: PULMONARY ARTERIAL HYPERTENSION
     Dosage: 125 MG, BID
     Route: 048

REACTIONS (14)
  - Septic shock [Unknown]
  - Heart rate decreased [Unknown]
  - Pneumonia [Unknown]
  - General physical health deterioration [Unknown]
  - Eye haematoma [Unknown]
  - Cyanosis [Unknown]
  - Scleroderma [Unknown]
  - Cardiac failure congestive [Unknown]
  - Pulmonary arterial hypertension [Unknown]
  - Condition aggravated [Unknown]
  - Cardiomegaly [Unknown]
  - Raynaud^s phenomenon [Unknown]
  - Hospitalisation [Unknown]
  - Dyspnoea [Unknown]
